FAERS Safety Report 6254037-0 (Version None)
Quarter: 2009Q3

REPORT INFORMATION
  Report Type: 
  Country: None (occurrence: None)
  Receive Date: 20090702
  Receipt Date: 20090624
  Transmission Date: 20100115
  Serious: Yes (Hospitalization, Other)
  Sender: FDA-Public Use
  Company Number: DE-BAYER-200919507GPV

PATIENT
  Age: 45 Year
  Sex: Female
  Weight: 63 kg

DRUGS (1)
  1. MIRENA [Suspect]
     Indication: DRUG USE FOR UNKNOWN INDICATION
     Route: 015
     Dates: start: 20041001, end: 20090513

REACTIONS (6)
  - CHEST PAIN [None]
  - COR PULMONALE [None]
  - DYSPNOEA AT REST [None]
  - OEDEMA PERIPHERAL [None]
  - PERFORMANCE STATUS DECREASED [None]
  - PULMONARY EMBOLISM [None]
